FAERS Safety Report 4370747-4 (Version None)
Quarter: 2004Q2

REPORT INFORMATION
  Report Type: 
  Country: None (occurrence: None)
  Receive Date: 20040601
  Receipt Date: 20040524
  Transmission Date: 20050107
  Serious: Yes (Other)
  Sender: FDA-Public Use
  Company Number: STA-AE-04-MTX-212

PATIENT
  Age: 62 Year
  Sex: Female

DRUGS (6)
  1. METHOTREXATE [Suspect]
     Indication: RHEUMATOID ARTHRITIS
     Dosage: 15 MG 1X PER 1WK
  2. KINERET [Suspect]
  3. CORTISONE (CORTISONE) [Concomitant]
  4. DICLOFENAC (DICLOFENAC) [Concomitant]
  5. ENBREL [Concomitant]
  6. REMICADE [Suspect]
     Dosage: TEN INJECTIONS AT 200 MG EACH, INTRAVENOUS
     Route: 042
     Dates: start: 20010207, end: 20020324

REACTIONS (1)
  - BREAST CANCER [None]
